FAERS Safety Report 4286209-9 (Version None)
Quarter: 2004Q1

REPORT INFORMATION
  Report Type: 
  Country: None (occurrence: None)
  Receive Date: 20040203
  Receipt Date: 20040121
  Transmission Date: 20041129
  Serious: Yes (Hospitalization, Other)
  Sender: FDA-Public Use
  Company Number: 2002061176

PATIENT
  Age: 60 Year
  Sex: Male
  Weight: 187 kg

DRUGS (8)
  1. LOPID [Suspect]
     Indication: HYPERLIPIDAEMIA
     Dosage: 1200 MG (BID), ORAL
     Route: 048
     Dates: start: 20010220
  2. PROCARDIA XL [Suspect]
     Indication: HYPERTENSION
     Dosage: 30 MG (DAILY), ORAL
     Route: 048
     Dates: start: 20030127
  3. ATENOLOL [Suspect]
     Indication: HYPERTENSION
     Dosage: 50 MG (DAILY), ORAL
     Route: 048
     Dates: end: 20021001
  4. BAYCOL [Suspect]
     Indication: BLOOD CHOLESTEROL INCREASED
     Dosage: 0.4 MG (DAILY), ORAL
     Route: 048
     Dates: start: 20010529, end: 20010622
  5. FELODIPINE [Suspect]
     Indication: HYPERTENSION
     Dosage: 5 MG (DAILY), ORAL
     Route: 048
     Dates: start: 20020731, end: 20021001
  6. DYAZIDE [Suspect]
     Indication: HYPERTENSION
     Dosage: 75/50 MILIGRAM (DAILY), ORAL
     Route: 048
     Dates: start: 20021001, end: 20021101
  7. ACETYLSALICYLIC ACID SRT [Concomitant]
  8. NIFEDIPINE [Concomitant]

REACTIONS (72)
  - ACROCHORDON [None]
  - ALANINE AMINOTRANSFERASE INCREASED [None]
  - ANXIETY [None]
  - ASPARTATE AMINOTRANSFERASE INCREASED [None]
  - ASTHENIA [None]
  - ATAXIA [None]
  - BACK PAIN [None]
  - BENIGN PROSTATIC HYPERPLASIA [None]
  - BLOOD BILIRUBIN INCREASED [None]
  - BLOOD GLUCOSE INCREASED [None]
  - BLOOD HOMOCYSTEINE INCREASED [None]
  - BRADYCARDIA [None]
  - CEREBROVASCULAR ACCIDENT [None]
  - CONDITION AGGRAVATED [None]
  - COUGH [None]
  - DEAFNESS [None]
  - DIFFICULTY IN WALKING [None]
  - DIZZINESS [None]
  - DRUG INTERACTION [None]
  - DYSPNOEA [None]
  - ERECTILE DYSFUNCTION [None]
  - FALL [None]
  - FEELING ABNORMAL [None]
  - HAEMATOCRIT DECREASED [None]
  - HAEMATURIA [None]
  - HAEMOGLOBIN DECREASED [None]
  - HEADACHE [None]
  - HEART RATE INCREASED [None]
  - HEPATIC ENZYME INCREASED [None]
  - HEPATITIS [None]
  - HYPERTENSION [None]
  - HYPOAESTHESIA [None]
  - INSOMNIA [None]
  - LABILE BLOOD PRESSURE [None]
  - LIBIDO DECREASED [None]
  - LIMB INJURY [None]
  - MENTAL STATUS CHANGES [None]
  - MUSCLE CRAMP [None]
  - MUSCLE INJURY [None]
  - MUSCLE TWITCHING [None]
  - MYOGLOBINURIA [None]
  - NASOPHARYNGITIS [None]
  - NECK PAIN [None]
  - NERVOUSNESS [None]
  - NEUTROPHIL PERCENTAGE INCREASED [None]
  - NIGHT SWEATS [None]
  - NIGHTMARE [None]
  - NOCTURIA [None]
  - OEDEMA PERIPHERAL [None]
  - OSTEOARTHRITIS [None]
  - PAIN IN EXTREMITY [None]
  - PARAESTHESIA [None]
  - PRESSURE OF SPEECH [None]
  - PROSTATISM [None]
  - PROTEIN URINE [None]
  - PYREXIA [None]
  - RASH PSORIAFORM [None]
  - RENAL INJURY [None]
  - RESIDUAL URINE VOLUME [None]
  - RHABDOMYOLYSIS [None]
  - SCRATCH [None]
  - SWELLING [None]
  - TESTICULAR SWELLING [None]
  - TRANSIENT ISCHAEMIC ATTACK [None]
  - UMBILICAL HERNIA [None]
  - UPPER RESPIRATORY TRACT INFECTION [None]
  - URINARY TRACT INFECTION [None]
  - URINE ANALYSIS ABNORMAL [None]
  - URINE FLOW DECREASED [None]
  - VERTIGO [None]
  - VITREOUS FLOATERS [None]
  - WEIGHT DECREASED [None]
